FAERS Safety Report 9633263 (Version 1)
Quarter: 2013Q4

REPORT INFORMATION
  Report Type: Spontaneous
  Country: US (occurrence: None)
  Receive Date: 20131018
  Receipt Date: 20131018
  Transmission Date: 20140711
  Serious: No
  Sender: FDA-Public Use
  Company Number: None

PATIENT
  Age: 57 Year
  Sex: Male
  Weight: 120.2 kg

DRUGS (1)
  1. XARALTO [Suspect]
     Indication: CEREBROVASCULAR ACCIDENT
     Dosage: ONCE DAILY

REACTIONS (2)
  - Diarrhoea [None]
  - Quality of life decreased [None]
